FAERS Safety Report 4512258-9 (Version None)
Quarter: 2004Q4

REPORT INFORMATION
  Report Type: 
  Country: None (occurrence: None)
  Receive Date: 20041123
  Receipt Date: 20041109
  Transmission Date: 20050328
  Serious: Yes (Disabling, Other)
  Sender: FDA-Public Use
  Company Number: 210349

PATIENT
  Age: 55 Year
  Sex: Male

DRUGS (7)
  1. MABTHERA      (RITUXIMAB) [Suspect]
     Indication: LYMPHOMA
     Dosage: INTRAVENOUS
     Route: 042
  2. CYCLOPHOSPHAMIDE [Concomitant]
  3. HYDROXYDAUNORUBICIN (DOXORUBICIN HYDROCHLORIDE, DOXORUBICIN) [Concomitant]
  4. ONCOVIN [Concomitant]
  5. ETOPOSIDE [Concomitant]
  6. PREDNISONE [Concomitant]
  7. METHOTREXATE [Concomitant]

REACTIONS (3)
  - BLINDNESS [None]
  - OPTIC ATROPHY [None]
  - OPTIC NEURITIS RETROBULBAR [None]
